FAERS Safety Report 10135947 (Version 4)
Quarter: 2014Q2

REPORT INFORMATION
  Report Type: Spontaneous
  Country: JP (occurrence: JP)
  Receive Date: 20140429
  Receipt Date: 20140522
  Transmission Date: 20141212
  Serious: Yes (Other)
  Sender: FDA-Public Use
  Company Number: JP-UCBSA-119117

PATIENT
  Age: 54 Year
  Sex: Male

DRUGS (9)
  1. E KEPPRA [Suspect]
     Indication: POST-TRAUMATIC EPILEPSY
     Dosage: STRENGTH: 500 MG
     Route: 048
     Dates: start: 20130813, end: 20140203
  2. E KEPPRA [Suspect]
     Indication: POST-TRAUMATIC EPILEPSY
     Dosage: STRENGTH: 500 MG
     Route: 048
     Dates: start: 20140204, end: 20140211
  3. EXCEGRAN [Suspect]
     Route: 048
  4. ALEVIATIN [Suspect]
     Route: 048
  5. DEPAKENE-R [Suspect]
     Route: 048
  6. URSO [Concomitant]
     Route: 048
  7. URINORM [Concomitant]
     Route: 048
  8. KRACIE HACHIMIJIOGANRYO EXTRACT [Concomitant]
     Route: 048
  9. RANITIDINE [Concomitant]
     Route: 048

REACTIONS (1)
  - Rash generalised [Not Recovered/Not Resolved]
